FAERS Safety Report 10540833 (Version 3)
Quarter: 2014Q4

REPORT INFORMATION
  Report Type: Report from Study
  Country: US (occurrence: US)
  Receive Date: 20141024
  Receipt Date: 20141125
  Transmission Date: 20150529
  Serious: Yes (Life-Threatening, Other)
  Sender: FDA-Public Use
  Company Number: US-GLAXOSMITHKLINE-A1088076A

PATIENT
  Age: 46 Year
  Sex: Female
  Weight: 61.22 kg

DRUGS (4)
  1. HYDROXYCHLOROQUINE TABLET [Concomitant]
  2. LISINOPRIL. [Concomitant]
     Active Substance: LISINOPRIL
  3. BELIMUMAB [Suspect]
     Active Substance: BELIMUMAB
     Indication: SYSTEMIC LUPUS ERYTHEMATOSUS
     Dosage: 1600 MG, MONTHLY
     Route: 042
     Dates: start: 201210, end: 201405
  4. PREDNISONE. [Concomitant]
     Active Substance: PREDNISONE

REACTIONS (4)
  - Haematuria [Recovered/Resolved]
  - Renal mass [Recovered/Resolved]
  - Drug ineffective [Unknown]
  - Renal cell carcinoma [Recovered/Resolved]

NARRATIVE: CASE EVENT DATE: 201404
